FAERS Safety Report 8522041-5 (Version None)
Quarter: 2012Q3

REPORT INFORMATION
  Report Type: 
  Country: None (occurrence: None)
  Receive Date: 20120719
  Receipt Date: 20120710
  Transmission Date: 20120928
  Serious: Yes (Other)
  Sender: FDA-Public Use
  Company Number: US-ASTRAZENECA-2012SE47394

PATIENT
  Age: 33 Year
  Sex: Male

DRUGS (1)
  1. QUETIAPINE [Suspect]
     Route: 048

REACTIONS (7)
  - MENTAL STATUS CHANGES [None]
  - TACHYCARDIA [None]
  - OVERDOSE [None]
  - HOT FLUSH [None]
  - MIOSIS [None]
  - COMA [None]
  - DRY SKIN [None]
